FAERS Safety Report 6587511-8 (Version None)
Quarter: 2010Q1

REPORT INFORMATION
  Report Type: 
  Country: None (occurrence: None)
  Receive Date: 20100204
  Receipt Date: 20100122
  Transmission Date: 20100710
  Serious: Yes (Other)
  Sender: FDA-Public Use
  Company Number: TRP_06580_2009

PATIENT
  Age: 58 Year
  Sex: Male

DRUGS (2)
  1. RIBASPHERE [Suspect]
     Indication: DRUG USE FOR UNKNOWN INDICATION
     Dosage: (DF)
  2. PEGASYS [Suspect]
     Indication: DRUG USE FOR UNKNOWN INDICATION
     Dosage: (DF)

REACTIONS (7)
  - ASTHENIA [None]
  - CHILLS [None]
  - DIARRHOEA [None]
  - DIPLOPIA [None]
  - HYPOTENSION [None]
  - PAIN [None]
  - SKIN DISCOLOURATION [None]
